FAERS Safety Report 6896333-X (Version None)
Quarter: 2010Q3

REPORT INFORMATION
  Report Type: 
  Country: None (occurrence: None)
  Receive Date: 20100802
  Receipt Date: 20100723
  Transmission Date: 20110219
  Serious: Yes (Death, Hospitalization, Other)
  Sender: FDA-Public Use
  Company Number: US-AMGEN-QUU426610

PATIENT
  Sex: Male

DRUGS (16)
  1. NPLATE [Suspect]
     Indication: MYELODYSPLASTIC SYNDROME
     Dates: start: 20100625, end: 20100716
  2. EPOGEN [Concomitant]
  3. NEUPOGEN [Concomitant]
     Dates: start: 20100624
  4. CARDURA [Concomitant]
  5. METOPROLOL [Concomitant]
  6. SYNTHROID [Concomitant]
     Route: 048
  7. CLONAZEPAM [Concomitant]
  8. TRILEPTAL [Concomitant]
  9. LITHIUM [Concomitant]
  10. RANITIDINE [Concomitant]
  11. EPOGEN [Concomitant]
     Route: 058
  12. SENNA [Concomitant]
     Route: 048
  13. POSACONAZOLE [Concomitant]
     Route: 048
  14. ACYCLOVIR [Concomitant]
     Route: 048
  15. COLACE [Concomitant]
  16. LANSOPRAZOLE [Concomitant]
     Route: 048

REACTIONS (11)
  - CHEST PAIN [None]
  - CONSTIPATION [None]
  - HAEMORRHAGE INTRACRANIAL [None]
  - HAEMORRHAGIC ANAEMIA [None]
  - OEDEMA PERIPHERAL [None]
  - PYREXIA [None]
  - RALES [None]
  - REFUSAL OF TREATMENT BY PATIENT [None]
  - SUBDURAL HAEMATOMA [None]
  - SYNCOPE [None]
  - THROMBOCYTOPENIA [None]
